FAERS Safety Report 9028257 (Version 1)
Quarter: 2013Q1

REPORT INFORMATION
  Report Type: Spontaneous
  Country: US (occurrence: None)
  Receive Date: 20130115
  Receipt Date: 20130115
  Transmission Date: 20140127
  Serious: No
  Sender: FDA-Public Use
  Company Number: None

PATIENT
  Sex: 0

DRUGS (1)
  1. EQUATE (WALMART) FIBER POWDER [Suspect]
     Dosage: 1 TEASPOON IN THE AM
     Dates: start: 20120801, end: 20121024

REACTIONS (1)
  - Product quality issue [None]
